FAERS Safety Report 9881495 (Version 1)
Quarter: 2014Q1

REPORT INFORMATION
  Report Type: Spontaneous
  Country: MA (occurrence: MA)
  Receive Date: 20140207
  Receipt Date: 20140207
  Transmission Date: 20141002
  Serious: Yes (Hospitalization)
  Sender: FDA-Public Use
  Company Number: MA-ABBVIE-14P-110-1198546-00

PATIENT
  Age: 19 Year
  Sex: Female

DRUGS (2)
  1. VALPROATE SODIUM [Suspect]
     Indication: EPILEPSY
  2. PHENOBARBITAL [Suspect]
     Indication: EPILEPSY

REACTIONS (17)
  - Overlap syndrome [Recovering/Resolving]
  - Dermatitis exfoliative [Unknown]
  - Rash generalised [Unknown]
  - Eosinophilia [Unknown]
  - Oral mucosa erosion [Unknown]
  - Genital erosion [Unknown]
  - Conjunctivitis [Unknown]
  - Nikolsky^s sign [Unknown]
  - Cytomegalovirus infection [Unknown]
  - Inflammatory marker increased [Unknown]
  - Pyrexia [Unknown]
  - Rash pustular [Unknown]
  - Interstitial lung disease [Recovering/Resolving]
  - Dyspnoea [Unknown]
  - Chills [Unknown]
  - Cough [Unknown]
  - Rhinorrhoea [Unknown]
